FAERS Safety Report 5418724-6 (Version None)
Quarter: 2007Q3

REPORT INFORMATION
  Report Type: 
  Country: None (occurrence: None)
  Receive Date: 20070817
  Receipt Date: 20070806
  Transmission Date: 20080115
  Serious: Yes (Other)
  Sender: FDA-Public Use
  Company Number: JP-PFIZER INC-2007050335

PATIENT
  Age: 71 Year
  Sex: Female
  Weight: 54 kg

DRUGS (11)
  1. SULPERAZON [Suspect]
     Indication: PYOTHORAX
     Route: 042
     Dates: start: 20070427, end: 20070608
  2. SULPERAZON [Suspect]
     Indication: PERINEPHRIC ABSCESS
  3. MICARDIS [Concomitant]
     Indication: HYPERTENSION
     Route: 048
  4. LIPITOR [Concomitant]
     Indication: HYPERCHOLESTEROLAEMIA
     Route: 048
  5. TANATRIL ^TANABE^ [Concomitant]
     Indication: HYPERTENSION
     Route: 048
  6. KINEDAK [Concomitant]
     Indication: NEUROPATHY PERIPHERAL
     Route: 048
  7. FERROMIA [Concomitant]
     Indication: IRON DEFICIENCY ANAEMIA
     Route: 048
  8. RABEPRAZOLE SODIUM [Concomitant]
     Indication: GASTROOESOPHAGEAL REFLUX DISEASE
     Route: 048
  9. PURSENNID [Concomitant]
     Indication: CONSTIPATION
     Route: 048
  10. CINALONG [Concomitant]
     Indication: HYPERTENSION
     Route: 048
  11. DOXAZOSIN MESYLATE [Concomitant]
     Indication: HYPERTENSION
     Route: 048

REACTIONS (1)
  - HYPOKALAEMIA [None]
